FAERS Safety Report 10266800 (Version 2)
Quarter: 2014Q3

REPORT INFORMATION
  Report Type: Spontaneous
  Country: ES (occurrence: ES)
  Receive Date: 20140630
  Receipt Date: 20140703
  Transmission Date: 20150326
  Serious: Yes (Other)
  Sender: FDA-Public Use
  Company Number: ES-ORION CORPORATION ORION PHARMA-ENTC2014-0230

PATIENT
  Age: 40 Year
  Sex: Female

DRUGS (1)
  1. STALEVO [Suspect]
     Active Substance: CARBIDOPA\ENTACAPONE\LEVODOPA
     Indication: CENTRAL NERVOUS SYSTEM LESION
     Route: 065
     Dates: start: 2002

REACTIONS (11)
  - Muscle spasticity [Unknown]
  - Wrong technique in drug usage process [Unknown]
  - Hypersomnia [Unknown]
  - Thyroid disorder [Unknown]
  - Joint dislocation [Unknown]
  - Central nervous system lesion [Not Recovered/Not Resolved]
  - Epilepsy [Unknown]
  - Muscle rigidity [Unknown]
  - Off label use [Unknown]
  - Dysphagia [Unknown]
  - Drug prescribing error [Unknown]
